FAERS Safety Report 5454926-0 (Version None)
Quarter: 2007Q3

REPORT INFORMATION
  Report Type: 
  Country: None (occurrence: None)
  Receive Date: 20070917
  Receipt Date: 20061017
  Transmission Date: 20080115
  Serious: No
  Sender: FDA-Public Use
  Company Number: US-ASTRAZENECA-2006UW20022

PATIENT
  Age: 34 Year
  Sex: Female

DRUGS (1)
  1. SEROQUEL [Suspect]
     Route: 048
     Dates: start: 20060701, end: 20060802

REACTIONS (1)
  - DRUG EXPOSURE DURING PREGNANCY [None]
